FAERS Safety Report 7981873-2 (Version None)
Quarter: 2011Q4

REPORT INFORMATION
  Report Type: 
  Country: None (occurrence: None)
  Receive Date: 20111215
  Receipt Date: 20111207
  Transmission Date: 20120403
  Serious: Yes (Congenital Anomaly, Other)
  Sender: FDA-Public Use
  Company Number: US-TEVA-312685USA

PATIENT
  Sex: Male
  Weight: 3.178 kg

DRUGS (1)
  1. LEVETIRACETAM [Suspect]
     Route: 065

REACTIONS (1)
  - CRYPTORCHISM [None]
